FAERS Safety Report 7086387-2 (Version None)
Quarter: 2010Q4

REPORT INFORMATION
  Report Type: 
  Country: None (occurrence: None)
  Receive Date: 20101105
  Receipt Date: 20101103
  Transmission Date: 20110411
  Serious: Yes (Other)
  Sender: FDA-Public Use
  Company Number: IT-AMGEN-KDC415679

PATIENT
  Sex: Female

DRUGS (2)
  1. DENOSUMAB [Suspect]
     Indication: METASTASES TO BONE
     Dosage: UNK UNK, UNK
     Dates: start: 20091111, end: 20100202
  2. DOXORUBICIN HCL [Concomitant]
     Dosage: UNK UNK, UNK
     Dates: start: 20100119

REACTIONS (2)
  - OSTEONECROSIS [None]
  - OSTEONECROSIS OF JAW [None]
